FAERS Safety Report 25580992 (Version 2)
Quarter: 2025Q3

REPORT INFORMATION
  Report Type: Spontaneous
  Country: US (occurrence: US)
  Receive Date: 20250718
  Receipt Date: 20250718
  Transmission Date: 20251021
  Serious: No
  Sender: NOVO NORDISK
  Company Number: US-NOVOPROD-1453642

PATIENT
  Sex: Female

DRUGS (2)
  1. WEGOVY [Suspect]
     Active Substance: SEMAGLUTIDE
     Indication: Weight control
     Dates: start: 202404, end: 202412
  2. WEGOVY [Suspect]
     Active Substance: SEMAGLUTIDE
     Indication: Weight control
     Dates: end: 202412

REACTIONS (8)
  - Blood cholesterol decreased [Recovered/Resolved]
  - Blood cholesterol increased [Unknown]
  - Glycosylated haemoglobin decreased [Recovered/Resolved]
  - Glycosylated haemoglobin increased [Unknown]
  - Blood pressure decreased [Recovered/Resolved]
  - Blood pressure increased [Unknown]
  - Weight increased [Unknown]
  - Weight decreased [Recovered/Resolved]

NARRATIVE: CASE EVENT DATE: 20240401
